FAERS Safety Report 21992661 (Version 1)
Quarter: 2023Q1

REPORT INFORMATION
  Report Type: Report from Study
  Country: US (occurrence: US)
  Receive Date: 20230215
  Receipt Date: 20230215
  Transmission Date: 20230418
  Serious: Yes (Other)
  Sender: FDA-Public Use
  Company Number: US-ABBVIE-4306811

PATIENT
  Sex: Female

DRUGS (1)
  1. HUMIRA [Suspect]
     Active Substance: ADALIMUMAB
     Indication: Rheumatoid arthritis
     Dosage: EVENT ONSET DATE 2022
     Route: 058
     Dates: start: 20221030

REACTIONS (2)
  - Obstruction [Recovering/Resolving]
  - Back pain [Not Recovered/Not Resolved]
